FAERS Safety Report 4330559-4 (Version None)
Quarter: 2004Q2

REPORT INFORMATION
  Report Type: 
  Country: None (occurrence: None)
  Receive Date: 20040402
  Receipt Date: 20040326
  Transmission Date: 20050107
  Serious: Yes (Life-Threatening)
  Sender: FDA-Public Use
  Company Number: PHEH2004US03555

PATIENT
  Sex: Female

DRUGS (1)
  1. LOTREL [Suspect]

REACTIONS (1)
  - UNEVALUABLE EVENT [None]
